FAERS Safety Report 15388450 (Version 4)
Quarter: 2018Q4

REPORT INFORMATION
  Report Type: Report from Study
  Country: KR (occurrence: KR)
  Receive Date: 20180915
  Receipt Date: 20181004
  Transmission Date: 20190204
  Serious: Yes (Death, Hospitalization)
  Sender: FDA-Public Use
  Company Number: KR-AMGEN-KORCT2018119095

PATIENT
  Age: 64 Year
  Sex: Female
  Weight: 54 kg

DRUGS (13)
  1. DARATUMUMAB [Suspect]
     Active Substance: DARATUMUMAB
     Indication: PRODUCT USED FOR UNKNOWN INDICATION
     Dosage: UNK
     Route: 065
     Dates: start: 20180731, end: 20180810
  2. LENALIDOMIDE [Concomitant]
     Active Substance: LENALIDOMIDE
     Dosage: UNK
     Dates: start: 20180115, end: 20180328
  3. UNASYN [Concomitant]
     Active Substance: AMPICILLIN SODIUM\SULBACTAM SODIUM
     Dosage: 375 MG, UNK
     Route: 048
     Dates: start: 20170221, end: 20180905
  4. KYPROLIS [Concomitant]
     Active Substance: CARFILZOMIB
     Dosage: 1.63 MG/M2, UNK
     Dates: start: 20180115, end: 20180328
  5. PLUNAZOLE [Concomitant]
     Dosage: 50 MG, UNK
     Route: 048
     Dates: start: 20140617, end: 20180905
  6. CALCIUM + VITAMIN D [Concomitant]
     Active Substance: CALCIUM\VITAMIN D
     Dosage: 1 UNK, 750/400 MG/IU, UNK
     Route: 048
     Dates: start: 20140715, end: 20180905
  7. ASPIRIN PROTECT [Concomitant]
     Active Substance: ASPIRIN
     Dosage: 100 MG, UNK
     Route: 048
     Dates: start: 20160719, end: 20180905
  8. VIVIR [Concomitant]
     Dosage: 400 MG, UNK
     Route: 048
     Dates: start: 20170905, end: 20180905
  9. DEXAMETHASONE. [Concomitant]
     Active Substance: DEXAMETHASONE
     Dosage: UNK
     Dates: start: 20180115, end: 20180328
  10. SEPTRIN [Concomitant]
     Active Substance: SULFAMETHOXAZOLE\TRIMETHOPRIM
     Dosage: 400 MG, UNK
     Route: 048
     Dates: start: 20140617, end: 20180813
  11. STILLEN [Concomitant]
     Dosage: 90 MG, UNK
     Route: 048
     Dates: start: 20161227, end: 20180905
  12. DENOSUMAB [Suspect]
     Active Substance: DENOSUMAB
     Indication: PLASMA CELL MYELOMA
     Dosage: 1.7 ML, UNK
     Route: 065
     Dates: start: 20170124, end: 20180731
  13. LYRICA [Concomitant]
     Active Substance: PREGABALIN
     Dosage: 150 MG, UNK
     Route: 048
     Dates: start: 20170704, end: 20180905

REACTIONS (3)
  - Protein urine present [Fatal]
  - Asthenia [Not Recovered/Not Resolved]
  - Depression [Not Recovered/Not Resolved]

NARRATIVE: CASE EVENT DATE: 20180813
